FAERS Safety Report 5781139-5 (Version None)
Quarter: 2008Q2

REPORT INFORMATION
  Report Type: 
  Country: None (occurrence: None)
  Receive Date: 20080620
  Receipt Date: 20080612
  Transmission Date: 20081010
  Serious: Yes (Other)
  Sender: FDA-Public Use
  Company Number: FR-PFIZER INC-2008050982

PATIENT
  Age: 55 Year
  Sex: Female

DRUGS (7)
  1. CELEBREX [Suspect]
  2. LYRICA [Suspect]
  3. NEXIUM [Suspect]
  4. SPASFON-LYOC [Concomitant]
     Indication: ENTEROCOLITIS HAEMORRHAGIC
  5. MESALAMINE [Concomitant]
     Indication: ENTEROCOLITIS HAEMORRHAGIC
  6. EFFEXOR [Concomitant]
  7. XANAX [Concomitant]

REACTIONS (1)
  - HEPATITIS [None]
